FAERS Safety Report 8986138 (Version 1)
Quarter: 2012Q4

REPORT INFORMATION
  Report Type: Spontaneous
  Country: US (occurrence: None)
  Receive Date: 20121217
  Receipt Date: 20121217
  Transmission Date: 20130627
  Serious: Yes (Hospitalization, Other)
  Sender: FDA-Public Use
  Company Number: 2012P1066669

PATIENT
  Age: 61 Year
  Sex: Male

DRUGS (2)
  1. LORAZEPAM [Suspect]
     Indication: SEDATION
     Route: 042
     Dates: start: 20121130, end: 20121130
  2. MORPHINE [Suspect]
     Indication: SEDATION
     Dates: start: 20121130, end: 20121130

REACTIONS (5)
  - Injection site streaking [None]
  - Pyrexia [None]
  - Endocarditis [None]
  - Cerebrovascular accident [None]
  - Sepsis [None]
